FAERS Safety Report 5871271-X (Version None)
Quarter: 2008Q3

REPORT INFORMATION
  Report Type: 
  Country: None (occurrence: None)
  Receive Date: 20080903
  Receipt Date: 20080903
  Transmission Date: 20090109
  Serious: Yes (Other)
  Sender: FDA-Public Use
  Company Number: None

PATIENT
  Sex: Male
  Weight: 100.6985 kg

DRUGS (1)
  1. DEXAMETHASONE SODIUM PHOSPHATE [Suspect]
     Indication: DERMATITIS CONTACT
     Dosage: 10MG ONCE IM
     Route: 030

REACTIONS (5)
  - ERYTHEMA [None]
  - FLUSHING [None]
  - HOT FLUSH [None]
  - SWELLING FACE [None]
  - URTICARIA [None]
